FAERS Safety Report 20101286 (Version 1)
Quarter: 2021Q4

REPORT INFORMATION
  Report Type: Spontaneous
  Country: US (occurrence: US)
  Receive Date: 20211123
  Receipt Date: 20211123
  Transmission Date: 20220303
  Serious: Yes (Hospitalization)
  Sender: FDA-Public Use
  Company Number: US-ALKEM LABORATORIES LIMITED-US-ALKEM-2021-07088

PATIENT
  Age: 28 Year
  Sex: Female

DRUGS (1)
  1. QUETIAPINE FUMARATE [Suspect]
     Active Substance: QUETIAPINE FUMARATE
     Indication: Product used for unknown indication
     Dosage: 800 MILLIGRAM, OD (NIGHT)
     Route: 065

REACTIONS (13)
  - Toxicity to various agents [Unknown]
  - Drug interaction [Unknown]
  - Tachycardia [Unknown]
  - Nausea [Unknown]
  - Vomiting [Unknown]
  - Lethargy [Unknown]
  - Anxiety [Unknown]
  - Disorganised speech [Unknown]
  - Blepharospasm [Unknown]
  - Muscle spasms [Unknown]
  - Eye movement disorder [Unknown]
  - Lactic acidosis [Unknown]
  - Electrocardiogram QT prolonged [Unknown]
